FAERS Safety Report 9628266 (Version 4)
Quarter: 2013Q4

REPORT INFORMATION
  Report Type: Spontaneous
  Country: CA (occurrence: CA)
  Receive Date: 20131017
  Receipt Date: 20131209
  Transmission Date: 20140711
  Serious: Yes (Other)
  Sender: FDA-Public Use
  Company Number: CA-PFIZER INC-2013178225

PATIENT
  Age: 60 Year
  Sex: Female
  Weight: 71 kg

DRUGS (5)
  1. DEPO-MEDROL [Suspect]
     Indication: BURSITIS
     Dosage: 1 DF, SINGLE, 80MG/ML VIAL
     Dates: start: 20130430, end: 20130430
  2. DEPO-MEDROL [Suspect]
     Indication: BURSITIS
  3. LANTUS [Concomitant]
     Dosage: UNK
  4. THYROID [Concomitant]
     Dosage: UNK
  5. CALCIUM [Concomitant]
     Dosage: UNK

REACTIONS (8)
  - Hypoglycaemia [Recovered/Resolved]
  - Road traffic accident [Unknown]
  - Emotional distress [Not Recovered/Not Resolved]
  - Feeling abnormal [Not Recovered/Not Resolved]
  - Feeling of despair [Not Recovered/Not Resolved]
  - Pain [Recovered/Resolved]
  - Confusional state [Recovered/Resolved]
  - Treatment noncompliance [Unknown]
